FAERS Safety Report 5017016-7 (Version None)
Quarter: 2006Q2

REPORT INFORMATION
  Report Type: 
  Country: None (occurrence: None)
  Receive Date: 20060526
  Receipt Date: 20060512
  Transmission Date: 20061013
  Serious: Yes (Life-Threatening, Hospitalization)
  Sender: FDA-Public Use
  Company Number: 0206009

PATIENT
  Age: 66 Year
  Sex: Female
  Weight: 97.5234 kg

DRUGS (11)
  1. DEPODUR [Suspect]
     Indication: POSTOPERATIVE ANALGESIA
     Dosage: 10 MG, ONCE, EPIDURAL
     Route: 008
     Dates: start: 20060410, end: 20060410
  2. FLUOXETINE [Concomitant]
  3. ARIMIDEX [Concomitant]
  4. OLANZAPINE [Concomitant]
  5. FOSAMAX [Concomitant]
  6. NEXIUM [Concomitant]
  7. SYNTHROID [Concomitant]
  8. PERCOCET [Concomitant]
  9. OXYCODONE HCL (OXYCODONE HYDROCHLORIDE) [Concomitant]
  10. VERSED [Concomitant]
  11. FENTANYL [Concomitant]

REACTIONS (5)
  - APNOEA [None]
  - LOSS OF CONSCIOUSNESS [None]
  - OPERATIVE HAEMORRHAGE [None]
  - POST PROCEDURAL COMPLICATION [None]
  - RESPIRATORY RATE DECREASED [None]
